FAERS Safety Report 4491337-9 (Version None)
Quarter: 2004Q4

REPORT INFORMATION
  Report Type: 
  Country: None (occurrence: None)
  Receive Date: 20041101
  Receipt Date: 20041101
  Transmission Date: 20050328
  Serious: Yes (Hospitalization)
  Sender: FDA-Public Use
  Company Number: None

PATIENT
  Age: 70 Year
  Sex: Male
  Weight: 111.1313 kg

DRUGS (11)
  1. GEMCITABINE [Suspect]
     Indication: NON-SMALL CELL LUNG CANCER
     Dosage: 1464 MG WEEKLY X 2 INTRAVENOU
     Route: 042
     Dates: start: 20041001, end: 20041008
  2. COZAAR [Concomitant]
  3. ZOCOR [Concomitant]
  4. ASPIRIN [Concomitant]
  5. COUMADIN [Concomitant]
  6. ALBUTERAL NEBS [Concomitant]
  7. ATENOLOL [Concomitant]
  8. PAXIL [Concomitant]
  9. ALLEGRA [Concomitant]
  10. METHYLPREDNISOLONE [Concomitant]
  11. PHENERGAN EXPECTORANT W/ CODEINE [Concomitant]

REACTIONS (5)
  - DRUG TOXICITY [None]
  - DYSPNOEA [None]
  - DYSPNOEA EXERTIONAL [None]
  - HYPOXIA [None]
  - RESPIRATORY FAILURE [None]
